FAERS Safety Report 8144042-1 (Version None)
Quarter: 2012Q1

REPORT INFORMATION
  Report Type: 
  Country: None (occurrence: None)
  Receive Date: 20120217
  Receipt Date: 20120217
  Transmission Date: 20120608
  Serious: Yes (Other)
  Sender: FDA-Public Use
  Company Number: None

PATIENT
  Age: 68 Year
  Sex: Male
  Weight: 90.264 kg

DRUGS (2)
  1. ATORVASTATIN -GENERIC LIPITOR- [Suspect]
     Indication: BLOOD CHOLESTEROL INCREASED
     Dosage: 40 MG.
     Dates: start: 20120205, end: 20120210
  2. SIMVASTATIN [Concomitant]
     Indication: BLOOD CHOLESTEROL INCREASED
     Dosage: 80 MG.
     Dates: start: 20070215, end: 20120115

REACTIONS (3)
  - BACK PAIN [None]
  - MOBILITY DECREASED [None]
  - DYSSTASIA [None]
